FAERS Safety Report 7301523-8 (Version None)
Quarter: 2011Q1

REPORT INFORMATION
  Report Type: 
  Country: None (occurrence: None)
  Receive Date: 20110218
  Receipt Date: 20101116
  Transmission Date: 20110831
  Serious: No
  Sender: FDA-Public Use
  Company Number: US-BRISTOL-MYERS SQUIBB COMPANY-15388952

PATIENT
  Age: 44 Year
  Sex: Female
  Weight: 54 kg

DRUGS (1)
  1. KENALOG [Suspect]
     Indication: DERMATITIS CONTACT
     Dosage: KENALOG SHOT
     Dates: start: 20100601

REACTIONS (3)
  - INJECTION SITE ATROPHY [None]
  - ARTHROPATHY [None]
  - ARTHRALGIA [None]
